FAERS Safety Report 7647106-1 (Version None)
Quarter: 2011Q3

REPORT INFORMATION
  Report Type: 
  Country: None (occurrence: None)
  Receive Date: 20110801
  Receipt Date: 20110728
  Transmission Date: 20111222
  Serious: Yes (Other)
  Sender: FDA-Public Use
  Company Number: US-SANOFI-AVENTIS-2011SA047289

PATIENT
  Age: 74 Year
  Sex: Female

DRUGS (7)
  1. ALL OTHER THERAPEUTIC PRODUCTS [Suspect]
     Indication: SCIATICA
     Route: 065
  2. METOPROLOL TARTRATE [Concomitant]
  3. DIGOXIN [Concomitant]
  4. ALTACE [Concomitant]
  5. COUMADIN [Concomitant]
  6. MULTAQ [Suspect]
     Route: 048
     Dates: start: 20110411, end: 20110727
  7. ATORVASTATIN [Concomitant]

REACTIONS (7)
  - NAUSEA [None]
  - SOMNOLENCE [None]
  - FATIGUE [None]
  - GASTROINTESTINAL DISORDER [None]
  - DYSGEUSIA [None]
  - ATRIAL FIBRILLATION [None]
  - SCIATICA [None]
